FAERS Safety Report 12839064 (Version 5)
Quarter: 2023Q2

REPORT INFORMATION
  Report Type: Report from Study
  Country: CO (occurrence: CO)
  Receive Date: 20161012
  Receipt Date: 20230605
  Transmission Date: 20230722
  Serious: Yes (Hospitalization, Disabling, Other)
  Sender: FDA-Public Use
  Company Number: PHHY2016CO139254

PATIENT
  Sex: Male
  Weight: 58 kg

DRUGS (4)
  1. IMATINIB [Suspect]
     Active Substance: IMATINIB
     Indication: Chronic myeloid leukaemia
     Dosage: UNK
     Route: 065
  2. TASIGNA [Suspect]
     Active Substance: NILOTINIB
     Indication: Chronic myeloid leukaemia
     Dosage: 400 MG, Q12H
     Route: 048
     Dates: start: 2015
  3. GLIVEC [Suspect]
     Active Substance: IMATINIB MESYLATE
     Indication: Chronic myeloid leukaemia
     Dosage: UNK
     Route: 065
     Dates: start: 2008
  4. GLIVEC [Suspect]
     Active Substance: IMATINIB MESYLATE
     Dosage: 400 MG, BID (400 MG TWICE A DAILY)
     Route: 049
     Dates: start: 20150126

REACTIONS (11)
  - White blood cell count increased [Unknown]
  - Chronic myeloid leukaemia recurrent [Unknown]
  - Pain [Unknown]
  - Intervertebral disc protrusion [Not Recovered/Not Resolved]
  - Leukaemia [Unknown]
  - Feeling abnormal [Unknown]
  - Muscle spasms [Unknown]
  - Depression [Unknown]
  - Rash [Unknown]
  - Drug hypersensitivity [Unknown]
  - Product dispensing error [Unknown]

NARRATIVE: CASE EVENT DATE: 20130101
